FAERS Safety Report 14045469 (Version 2)
Quarter: 2017Q4

REPORT INFORMATION
  Report Type: Spontaneous
  Country: US (occurrence: US)
  Receive Date: 20171005
  Receipt Date: 20171010
  Transmission Date: 20180321
  Serious: Yes (Other)
  Sender: FDA-Public Use
  Company Number: US-CONCORDIA PHARMACEUTICALS INC.-GSH201710-005656

PATIENT
  Age: 36 Year
  Sex: Female
  Weight: 84.4 kg

DRUGS (16)
  1. HUMIRA [Suspect]
     Active Substance: ADALIMUMAB
     Route: 058
     Dates: start: 20161005, end: 2017
  2. RHEUMATE [Concomitant]
     Active Substance: LEVOMEFOLIC ACID\METHYLCOBALAMIN\TURMERIC
     Dates: start: 20161114
  3. PLAQUENIL [Suspect]
     Active Substance: HYDROXYCHLOROQUINE SULFATE
     Indication: RHEUMATOID ARTHRITIS
     Route: 065
     Dates: start: 201412, end: 201701
  4. MELOXICAM. [Concomitant]
     Active Substance: MELOXICAM
     Dates: start: 20141101, end: 20170807
  5. REMICADE [Concomitant]
     Active Substance: INFLIXIMAB
     Dates: start: 20170112, end: 20170807
  6. RESTASIS [Concomitant]
     Active Substance: CYCLOSPORINE
     Dates: start: 20150303
  7. PLAQUENIL [Suspect]
     Active Substance: HYDROXYCHLOROQUINE SULFATE
     Route: 048
     Dates: start: 20170112
  8. HUMIRA [Suspect]
     Active Substance: ADALIMUMAB
     Indication: RHEUMATOID ARTHRITIS
     Route: 058
     Dates: start: 20160421
  9. METHOTREXATE. [Suspect]
     Active Substance: METHOTREXATE
     Dosage: 2.5 MG 10 TABLETS
     Route: 065
     Dates: start: 2017, end: 20170807
  10. SYNTHROID [Concomitant]
     Active Substance: LEVOTHYROXINE SODIUM
     Dates: start: 20141101
  11. ENBREL [Suspect]
     Active Substance: ETANERCEPT
     Indication: RHEUMATOID ARTHRITIS
     Route: 065
     Dates: start: 201503, end: 201604
  12. RHEUMATE [Concomitant]
     Active Substance: LEVOMEFOLIC ACID\METHYLCOBALAMIN\TURMERIC
     Dates: start: 20170112, end: 20170807
  13. METHOTREXATE. [Suspect]
     Active Substance: METHOTREXATE
     Indication: RHEUMATOID ARTHRITIS
     Route: 065
     Dates: start: 20141101, end: 20170406
  14. FOLIC ACID. [Suspect]
     Active Substance: FOLIC ACID
     Indication: PRODUCT USED FOR UNKNOWN INDICATION
     Route: 065
  15. RESTASIS [Concomitant]
     Active Substance: CYCLOSPORINE
     Dates: start: 20150107
  16. HYDROXYCHLOROQUINE [Concomitant]
     Active Substance: HYDROXYCHLOROQUINE
     Dates: start: 20141230, end: 20170807

REACTIONS (20)
  - Autoimmune thyroiditis [Unknown]
  - Fear of injection [Unknown]
  - Lacrimation decreased [Unknown]
  - Therapeutic response decreased [Unknown]
  - Insomnia [Unknown]
  - Alopecia [Recovered/Resolved]
  - Rheumatoid arthritis [Not Recovered/Not Resolved]
  - Fibromyalgia [Unknown]
  - Depression [Unknown]
  - Hypoaesthesia [Unknown]
  - Weight increased [Unknown]
  - Dry eye [Unknown]
  - Paraesthesia [Unknown]
  - Anxiety [Unknown]
  - Tinnitus [Unknown]
  - Ocular hyperaemia [Unknown]
  - Fatigue [Unknown]
  - Cough [Recovered/Resolved]
  - Rash [Unknown]
  - Conjunctivitis [Unknown]

NARRATIVE: CASE EVENT DATE: 20150325
